FAERS Safety Report 5118660-9 (Version None)
Quarter: 2006Q4

REPORT INFORMATION
  Report Type: 
  Country: None (occurrence: None)
  Receive Date: 20061002
  Receipt Date: 20060421
  Transmission Date: 20070319
  Serious: Yes (Other)
  Sender: FDA-Public Use
  Company Number: DE-GILEAD-2006-0009486

PATIENT
  Sex: Female
  Weight: 60 kg

DRUGS (3)
  1. VIREAD [Suspect]
     Indication: HIV INFECTION
     Route: 048
     Dates: start: 20050705
  2. KALETRA [Concomitant]
     Indication: HIV INFECTION
     Route: 048
     Dates: start: 20050705
  3. TRIZIVIR [Concomitant]
     Indication: HIV INFECTION
     Dates: start: 20050705

REACTIONS (5)
  - DRUG EXPOSURE DURING PREGNANCY [None]
  - INTRA-UTERINE DEATH [None]
  - MATERNAL CONDITION AFFECTING FOETUS [None]
  - MATERNAL DRUGS AFFECTING FOETUS [None]
  - PLACENTAL DISORDER [None]
